FAERS Safety Report 13960193 (Version 2)
Quarter: 2017Q3

REPORT INFORMATION
  Report Type: Spontaneous
  Country: US (occurrence: US)
  Receive Date: 20170912
  Receipt Date: 20170925
  Transmission Date: 20171128
  Serious: Yes (Death, Other)
  Sender: FDA-Public Use
  Company Number: US-009507513-1709USA004766

PATIENT
  Sex: Male

DRUGS (1)
  1. KEYTRUDA [Suspect]
     Active Substance: PEMBROLIZUMAB
     Dosage: SIX OR SEVEN CYCLES
     Dates: start: 20170503, end: 20170817

REACTIONS (1)
  - Malignant neoplasm progression [Fatal]
